FAERS Safety Report 23946930 (Version 1)
Quarter: 2024Q2

REPORT INFORMATION
  Report Type: Spontaneous
  Country: US (occurrence: None)
  Receive Date: 20240606
  Receipt Date: 20240606
  Transmission Date: 20240716
  Serious: No
  Sender: FDA-Public Use
  Company Number: None

PATIENT
  Sex: Male

DRUGS (1)
  1. SKYRIZI [Suspect]
     Active Substance: RISANKIZUMAB-RZAA
     Indication: Crohn^s disease
     Dosage: 360 MG  EVERY 8 WEEKS SUBCUTANEOUSLY?
     Route: 058
     Dates: start: 20240329

REACTIONS (2)
  - Hypersensitivity [None]
  - Therapy cessation [None]
